FAERS Safety Report 7646099-0 (Version None)
Quarter: 2011Q3

REPORT INFORMATION
  Report Type: 
  Country: None (occurrence: None)
  Receive Date: 20110801
  Receipt Date: 20110719
  Transmission Date: 20111222
  Serious: Yes (Other)
  Sender: FDA-Public Use
  Company Number: CH-BIOGENIDEC-2011BI028184

PATIENT
  Age: 55 Year
  Sex: Male
  Weight: 68 kg

DRUGS (3)
  1. LYRICA [Concomitant]
     Route: 048
     Dates: start: 20080101
  2. AVONEX [Suspect]
     Indication: MULTIPLE SCLEROSIS
     Route: 030
     Dates: start: 20080101, end: 20110501
  3. LIORESAL [Concomitant]
     Route: 048
     Dates: start: 20080101

REACTIONS (3)
  - GLOMERULONEPHRITIS MEMBRANOUS [None]
  - URINE ANALYSIS ABNORMAL [None]
  - PROTEINURIA [None]
